FAERS Safety Report 12212438 (Version 1)
Quarter: 2016Q1

REPORT INFORMATION
  Report Type: Report from Study
  Country: JP (occurrence: JP)
  Receive Date: 20160326
  Receipt Date: 20160326
  Transmission Date: 20160526
  Serious: Yes (Death, Other)
  Sender: FDA-Public Use
  Company Number: JP-BRISTOL-MYERS SQUIBB COMPANY-BMS-2016-022348

PATIENT
  Age: 79 Year
  Sex: Female
  Weight: 33 kg

DRUGS (2)
  1. APIXABAN [Suspect]
     Active Substance: APIXABAN
     Indication: CEREBROVASCULAR ACCIDENT PROPHYLAXIS
     Dosage: 2.5 MG, BID
     Route: 048
     Dates: start: 20140310, end: 20141001
  2. MICARDIS [Concomitant]
     Active Substance: TELMISARTAN
     Indication: THROMBOSIS PROPHYLAXIS
     Dosage: 40 MG, QD
     Route: 048

REACTIONS (3)
  - Off label use [Unknown]
  - Cardiac failure [Fatal]
  - Tracheostomy [Unknown]

NARRATIVE: CASE EVENT DATE: 20141001
